FAERS Safety Report 12313677 (Version 1)
Quarter: 2016Q2

REPORT INFORMATION
  Report Type: Spontaneous
  Country: US (occurrence: None)
  Receive Date: 20160427
  Receipt Date: 20160427
  Transmission Date: 20160815
  Serious: Yes (Other)
  Sender: FDA-Public Use
  Company Number: None

PATIENT
  Age: 49 Year
  Sex: Female
  Weight: 55 kg

DRUGS (4)
  1. ALOXI [Concomitant]
     Active Substance: PALONOSETRON HYDROCHLORIDE
  2. EMEND [Concomitant]
     Active Substance: APREPITANT
  3. PACLITAXEL 300MG APP [Suspect]
     Active Substance: PACLITAXEL
     Indication: BREAST CANCER
     Dosage: 130MG DOSE (20MG GIVEN BEFORE RXN) WEEKLY IV?3/10, 3/31 AND 4/14
     Route: 042
  4. FAMOTIDINE. [Concomitant]
     Active Substance: FAMOTIDINE

REACTIONS (6)
  - Chest discomfort [None]
  - Nausea [None]
  - Infusion related reaction [None]
  - Feeling hot [None]
  - Abdominal pain upper [None]
  - Flushing [None]

NARRATIVE: CASE EVENT DATE: 20160414
